FAERS Safety Report 21087296 (Version 1)
Quarter: 2022Q3

REPORT INFORMATION
  Report Type: Spontaneous
  Country: US (occurrence: None)
  Receive Date: 20220714
  Receipt Date: 20220714
  Transmission Date: 20221026
  Serious: No
  Sender: FDA-Public Use
  Company Number: None

PATIENT
  Age: 64 Year
  Sex: Female
  Weight: 71.67 kg

DRUGS (22)
  1. VERZENIO [Suspect]
     Active Substance: ABEMACICLIB
     Indication: Breast cancer female
     Dosage: FREQUENCY : TWICE A DAY;?
     Route: 048
     Dates: start: 202103
  2. AMLODIPINE [Concomitant]
     Active Substance: AMLODIPINE BESYLATE
  3. BESYLATE [Concomitant]
  4. ASPIRIN [Concomitant]
     Active Substance: ASPIRIN
  5. ATORVASTATIN CALCIUM [Concomitant]
     Active Substance: ATORVASTATIN CALCIUM
  6. AELASTINE-FLUTICASONE [Concomitant]
  7. B-COMPLEX -C [Concomitant]
  8. BIOTIN [Concomitant]
     Active Substance: BIOTIN
  9. BUDESONIDE\FORMOTEROL\GLYCOPYRRONIUM [Concomitant]
     Active Substance: BUDESONIDE\FORMOTEROL\GLYCOPYRRONIUM
  10. DULOXETINE [Concomitant]
     Active Substance: DULOXETINE
  11. EXEMESTANE [Concomitant]
     Active Substance: EXEMESTANE
  12. LEVOTHYROXINE SODIUM [Concomitant]
     Active Substance: LEVOTHYROXINE SODIUM
  13. LOSARTAN [Concomitant]
     Active Substance: LOSARTAN
  14. POTASSIUM [Concomitant]
  15. MEDICAL MARIJUANAS [Concomitant]
  16. OMEPRAZOLE [Concomitant]
     Active Substance: OMEPRAZOLE
  17. SENNA [Concomitant]
  18. VITAMIN B12 [Concomitant]
     Active Substance: CYANOCOBALAMIN
  19. TYLENOL [Concomitant]
     Active Substance: ACETAMINOPHEN
  20. VENLAFAXINE [Concomitant]
  21. VITAMIN D [Concomitant]
     Active Substance: VITAMIN D NOS
  22. XHANCE NASAL [Concomitant]

REACTIONS (2)
  - Thyroid hormones decreased [None]
  - Alopecia [None]
